FAERS Safety Report 7912456-8 (Version None)
Quarter: 2011Q4

REPORT INFORMATION
  Report Type: 
  Country: None (occurrence: None)
  Receive Date: 20111114
  Receipt Date: 20111102
  Transmission Date: 20120403
  Serious: Yes (Hospitalization, Other)
  Sender: FDA-Public Use
  Company Number: US-BAYER-2011-034678

PATIENT
  Age: 17 Year
  Sex: Female

DRUGS (9)
  1. WELLBUTRIN [Concomitant]
     Dosage: 100 MG, QD
     Route: 048
     Dates: start: 20080501, end: 20100101
  2. LAMICTAL [Concomitant]
     Dosage: UNK
     Route: 048
     Dates: start: 20091101, end: 20091201
  3. MICROGESTIN 1.5/30 [Concomitant]
     Dosage: UNK
     Dates: start: 20080301, end: 20080901
  4. YAZ [Suspect]
     Indication: PREMENSTRUAL SYNDROME
  5. BUPROPION HCL [Concomitant]
     Indication: DEPRESSION
     Dosage: UNK
     Dates: start: 20081001, end: 20100101
  6. GARDASIL VACCINE [Concomitant]
  7. ADDERALL 5 [Concomitant]
     Dosage: 10 MG, QD
     Route: 048
     Dates: start: 20080501, end: 20091101
  8. YAZ [Suspect]
     Indication: ORAL CONTRACEPTION
     Dosage: UNK
     Dates: start: 20081001, end: 20091201
  9. ANTIBIOTICS [Concomitant]
     Indication: VAGINAL INFECTION
     Dosage: UNK
     Dates: start: 20091207

REACTIONS (7)
  - ANXIETY [None]
  - PAIN [None]
  - GENERAL PHYSICAL HEALTH DETERIORATION [None]
  - EMOTIONAL DISTRESS [None]
  - INJURY [None]
  - GALLBLADDER INJURY [None]
  - CHOLECYSTITIS CHRONIC [None]
